FAERS Safety Report 5589344-8 (Version None)
Quarter: 2008Q1

REPORT INFORMATION
  Report Type: 
  Country: None (occurrence: None)
  Receive Date: 20080114
  Receipt Date: 20080108
  Transmission Date: 20080703
  Serious: Yes (Hospitalization)
  Sender: FDA-Public Use
  Company Number: IE-AVENTIS-200810309GDDC

PATIENT
  Age: 64 Year
  Sex: Female
  Weight: 65 kg

DRUGS (5)
  1. DOCETAXEL [Suspect]
     Indication: NON-SMALL CELL LUNG CANCER METASTATIC
     Dosage: DOSE: UNK
     Route: 042
     Dates: start: 20071018, end: 20071209
  2. PLACEBO [Suspect]
     Indication: NON-SMALL CELL LUNG CANCER METASTATIC
     Dosage: DOSE: UNK
     Route: 048
     Dates: start: 20071018, end: 20071209
  3. CIPROFLOXACIN [Concomitant]
     Indication: SKIN INFECTION
     Dates: start: 20071127
  4. FLUCLOXACILLIN [Concomitant]
     Indication: SKIN INFECTION
     Dates: start: 20071127
  5. SOTALOL HYDROCHLORIDE [Concomitant]
     Indication: SINUS TACHYCARDIA

REACTIONS (2)
  - PERICARDITIS [None]
  - RESPIRATORY TRACT INFECTION [None]
